FAERS Safety Report 6968775-5 (Version None)
Quarter: 2010Q3

REPORT INFORMATION
  Report Type: 
  Country: None (occurrence: None)
  Receive Date: 20100907
  Receipt Date: 20100901
  Transmission Date: 20110219
  Serious: Yes (Hospitalization)
  Sender: FDA-Public Use
  Company Number: PHHO2009GB14865

PATIENT
  Sex: Male

DRUGS (2)
  1. AFINITOR [Suspect]
     Indication: METASTATIC RENAL CELL CARCINOMA
     Dosage: 10 MG DAILY
     Route: 048
     Dates: start: 20090904, end: 20091231
  2. OXYGEN THERAPY [Concomitant]

REACTIONS (3)
  - DYSPNOEA [None]
  - LETHARGY [None]
  - PULMONARY TOXICITY [None]
